FAERS Safety Report 7335095-9 (Version None)
Quarter: 2011Q1

REPORT INFORMATION
  Report Type: 
  Country: None (occurrence: None)
  Receive Date: 20110307
  Receipt Date: 20100726
  Transmission Date: 20110831
  Serious: Yes (Hospitalization)
  Sender: FDA-Public Use
  Company Number: US-BAYER-201023180NA

PATIENT
  Sex: Female
  Weight: 77.098 kg

DRUGS (9)
  1. YAZ [Suspect]
     Indication: ORAL CONTRACEPTION
     Dosage: UNK UNK, UNK
     Route: 048
     Dates: start: 20080801, end: 20090801
  2. DIPHENHYDRAMINE [Concomitant]
     Dosage: 25 MG, PRN
     Route: 048
  3. RANITIDINE [Concomitant]
     Dosage: 50 MG, BID
     Route: 048
  4. NAXOPREN [Concomitant]
  5. ASCORBIC ACID [Concomitant]
  6. YASMIN [Suspect]
     Indication: PRODUCT USED FOR UNKNOWN INDICATION
     Route: 065
  7. PROTEIN SUPPLEMENTS [Concomitant]
  8. IBUPROFEN [Concomitant]
  9. MULTI-VITAMIN [Concomitant]
     Dosage: 1 DF, QD
     Route: 048

REACTIONS (5)
  - CHOLELITHIASIS [None]
  - ABDOMINAL PAIN UPPER [None]
  - GALLBLADDER CHOLESTEROLOSIS [None]
  - ABDOMINAL DISTENSION [None]
  - CHOLECYSTITIS CHRONIC [None]
